FAERS Safety Report 18425754 (Version 1)
Quarter: 2020Q4

REPORT INFORMATION
  Report Type: Spontaneous
  Country: SE (occurrence: SE)
  Receive Date: 20201026
  Receipt Date: 20201026
  Transmission Date: 20210114
  Serious: Yes (Hospitalization, Disabling)
  Sender: FDA-Public Use
  Company Number: SE-ROCHE-2575680

PATIENT
  Age: 63 Year
  Sex: Female

DRUGS (7)
  1. VALGANCICLOVIR. [Suspect]
     Active Substance: VALGANCICLOVIR
     Indication: PRODUCT USED FOR UNKNOWN INDICATION
     Route: 048
     Dates: start: 20191204, end: 20191222
  2. MINIDERM (SWEDEN) [Concomitant]
  3. AIROMIR [Concomitant]
     Active Substance: ALBUTEROL SULFATE
  4. PAMIDRONATDINATRIUM [Concomitant]
  5. BACTRIM [Suspect]
     Active Substance: SULFAMETHOXAZOLE\TRIMETHOPRIM
     Indication: PRODUCT USED FOR UNKNOWN INDICATION
     Dosage: DATE OF MOST RECENT DOSE OF BACTRIM FORTE: 22/DEC/2019
     Route: 065
     Dates: start: 201911
  6. ZOPIKLON [Concomitant]
     Active Substance: ZOPICLONE
  7. LETROZOL [Concomitant]
     Active Substance: LETROZOLE

REACTIONS (1)
  - Urticaria [Recovered/Resolved]

NARRATIVE: CASE EVENT DATE: 20191220
